FAERS Safety Report 24340377 (Version 2)
Quarter: 2024Q4

REPORT INFORMATION
  Report Type: Spontaneous
  Country: US (occurrence: US)
  Receive Date: 20240919
  Receipt Date: 20241028
  Transmission Date: 20250114
  Serious: No
  Sender: TAKEDA
  Company Number: US-TAKEDA-2024TUS092272

PATIENT
  Weight: 88.45 kg

DRUGS (3)
  1. ENTYVIO [Suspect]
     Active Substance: VEDOLIZUMAB
     Indication: Colitis ulcerative
     Dosage: 0.68 MILLILITER, Q2WEEKS
     Route: 058
     Dates: start: 20240808
  2. ENTYVIO [Suspect]
     Active Substance: VEDOLIZUMAB
     Indication: Colitis ulcerative
     Dosage: 0.68 MILLILITER, Q2WEEKS
     Route: 058
     Dates: start: 20240808
  3. CONCERTA [Concomitant]
     Active Substance: METHYLPHENIDATE HYDROCHLORIDE
     Dosage: 54 MILLIGRAM

REACTIONS (3)
  - No adverse event [Unknown]
  - Device defective [Unknown]
  - Incorrect dose administered [Unknown]
